FAERS Safety Report 8226277-2 (Version None)
Quarter: 2012Q1

REPORT INFORMATION
  Report Type: 
  Country: None (occurrence: None)
  Receive Date: 20120321
  Receipt Date: 20120312
  Transmission Date: 20120608
  Serious: Yes (Other)
  Sender: FDA-Public Use
  Company Number: PHHY2012VE023106

PATIENT
  Sex: Female

DRUGS (8)
  1. EXELON [Suspect]
     Indication: DEMENTIA
     Dosage: 4.6 MG, BID
     Route: 062
  2. ACETAMINOPHEN [Concomitant]
     Indication: PAIN
     Dosage: 650 MG, UNK
     Route: 048
  3. TRILEPTAL [Concomitant]
     Dosage: 300 MG, TID
     Route: 048
  4. MEMANTINE HYDROCHLORIDE [Concomitant]
     Dosage: 10 MG, QOD
     Route: 048
  5. QUETIAPINE [Concomitant]
     Dosage: 25 MG, BID
     Route: 048
  6. NORVASC [Concomitant]
     Indication: HYPERTENSION
     Dosage: 5 MG, QOD
     Route: 048
  7. NEURONTIN [Concomitant]
     Indication: PAIN
     Dosage: UNK UKN, PRN
     Route: 048
  8. HYDROCHLOROTHIAZIDE [Concomitant]
     Dosage: 6 MG, QOD
     Route: 048

REACTIONS (4)
  - MYOCLONUS [None]
  - APNOEA [None]
  - INCORRECT DRUG ADMINISTRATION DURATION [None]
  - CONVULSION [None]
